FAERS Safety Report 23673246 (Version 1)
Quarter: 2024Q1

REPORT INFORMATION
  Report Type: Spontaneous
  Country: US (occurrence: None)
  Receive Date: 20240325
  Receipt Date: 20240325
  Transmission Date: 20240410
  Serious: Yes (Other)
  Sender: FDA-Public Use
  Company Number: None

PATIENT
  Age: 76 Year
  Sex: Female
  Weight: 59.4 kg

DRUGS (8)
  1. MACROBID [Suspect]
     Active Substance: NITROFURANTOIN\NITROFURANTOIN MONOHYDRATE
     Indication: Urinary tract infection
     Dosage: FREQUENCY : TWICE A DAY;?
     Route: 048
     Dates: start: 20240321, end: 20240325
  2. METOPROLOL [Concomitant]
     Active Substance: METOPROLOL
  3. AMLODIPINE [Concomitant]
     Active Substance: AMLODIPINE BESYLATE
  4. LOSARTAN [Concomitant]
     Active Substance: LOSARTAN
  5. RESTASIS [Concomitant]
     Active Substance: CYCLOSPORINE
  6. ALENDRONATE [Concomitant]
     Active Substance: ALENDRONATE SODIUM
  7. PRILOSEC OTC [Concomitant]
     Active Substance: OMEPRAZOLE MAGNESIUM
  8. VITAMIN D [Concomitant]
     Active Substance: VITAMIN D NOS

REACTIONS (7)
  - Pyrexia [None]
  - Dizziness [None]
  - Chills [None]
  - Hyperhidrosis [None]
  - Feeling abnormal [None]
  - Ageusia [None]
  - Dyspepsia [None]

NARRATIVE: CASE EVENT DATE: 20240322
